FAERS Safety Report 9681505 (Version 1)
Quarter: 2013Q4

REPORT INFORMATION
  Report Type: Spontaneous
  Country: FR (occurrence: FR)
  Receive Date: 20131111
  Receipt Date: 20131111
  Transmission Date: 20140711
  Serious: Yes (Hospitalization)
  Sender: FDA-Public Use
  Company Number: FR-PFIZER INC-2013315725

PATIENT
  Age: 90 Year
  Sex: Male

DRUGS (5)
  1. ALDACTONE [Suspect]
     Dosage: UNK
     Route: 048
     Dates: end: 20130926
  2. DIGOXINE NATIVELLE [Interacting]
     Indication: ARRHYTHMIA
     Dosage: UNK
     Route: 048
     Dates: end: 20130926
  3. LASILIX [Interacting]
     Dosage: UNK
     Route: 048
     Dates: end: 20130926
  4. CORDARONE [Concomitant]
     Dosage: UNK
     Dates: end: 20130926
  5. XARELTO [Concomitant]
     Dosage: UNK

REACTIONS (5)
  - Drug interaction [Recovered/Resolved]
  - Cardioactive drug level increased [Recovered/Resolved]
  - Renal failure [Recovered/Resolved]
  - Nausea [Recovered/Resolved]
  - Vomiting [Recovered/Resolved]
